FAERS Safety Report 9380576 (Version 2)
Quarter: 2013Q4

REPORT INFORMATION
  Report Type: Report from Study
  Country: US (occurrence: US)
  Receive Date: 20130702
  Receipt Date: 20131104
  Transmission Date: 20140711
  Serious: Yes (Hospitalization)
  Sender: FDA-Public Use
  Company Number: US-PFIZER INC-HQ9132702APR2001

PATIENT
  Age: 68 Year
  Sex: Male
  Weight: 102.9 kg

DRUGS (14)
  1. TEMSIROLIMUS [Suspect]
     Indication: RENAL CELL CARCINOMA
     Dosage: 250 MG, WEEKLY
     Route: 042
     Dates: start: 20001004
  2. ACETYLSALICYLIC ACID [Concomitant]
     Dosage: UNK
     Route: 048
     Dates: start: 20010328
  3. ALLOPURINOL [Concomitant]
     Dosage: UNK
     Route: 048
     Dates: start: 20010328
  4. COREG [Concomitant]
     Dosage: UNK
     Route: 048
     Dates: start: 20001210
  5. COLACE [Concomitant]
     Dosage: UNK
  6. VASOTEC [Concomitant]
     Dosage: UNK
     Route: 048
     Dates: start: 20010328
  7. PROCRIT [Concomitant]
     Dosage: UNK
     Route: 058
     Dates: start: 20010328
  8. LASIX [Concomitant]
     Dosage: UNK
     Route: 048
     Dates: start: 20010328
  9. ISOSORBIDE DINITRATE [Concomitant]
     Dosage: UNK
     Route: 048
     Dates: start: 20010328
  10. OXYCONTIN [Concomitant]
     Dosage: UNK
     Route: 048
     Dates: start: 20010328
  11. SENNA FRUIT [Concomitant]
     Dosage: UNK
  12. ALDACTONE [Concomitant]
     Dosage: UNK
     Route: 048
     Dates: start: 20010328
  13. DETROL [Concomitant]
     Dosage: UNK
     Route: 048
     Dates: start: 20010328
  14. WARFARIN SODIUM [Concomitant]
     Dosage: UNK
     Route: 048
     Dates: start: 20001109

REACTIONS (10)
  - Haemoptysis [Recovering/Resolving]
  - Dehydration [Recovered/Resolved]
  - Mucosal inflammation [Recovered/Resolved]
  - Epistaxis [Recovering/Resolving]
  - Fatigue [Recovering/Resolving]
  - Blood urea increased [Recovering/Resolving]
  - Blood creatinine increased [Recovering/Resolving]
  - Lung infiltration [Recovering/Resolving]
  - Hypophagia [Recovering/Resolving]
  - International normalised ratio increased [Recovered/Resolved]
